FAERS Safety Report 4332019-3 (Version None)
Quarter: 2004Q2

REPORT INFORMATION
  Report Type: 
  Country: None (occurrence: None)
  Receive Date: 20040405
  Receipt Date: 20040329
  Transmission Date: 20050107
  Serious: Yes (Death, Other)
  Sender: FDA-Public Use
  Company Number: PHFR2004GB01565

PATIENT
  Age: 22 Year
  Sex: Female

DRUGS (4)
  1. CYCLOSPORINE [Suspect]
     Indication: GRAFT VERSUS HOST DISEASE
     Dosage: FROM DAY -1
     Route: 065
  2. MABCAMPATH [Suspect]
     Indication: BONE MARROW TRANSPLANT
     Dosage: 20MG/DAY (DAYS -8 TO -4)
     Route: 065
  3. FLUDARABINE PHOSPHATE [Suspect]
     Indication: BONE MARROW TRANSPLANT
     Dosage: 30MG/M2 (DAYS -7 TO -3)
     Route: 065
  4. MELPHALAN [Suspect]
     Indication: BONE MARROW TRANSPLANT
     Dosage: 140MG/M2 (DAY -2)
     Route: 065

REACTIONS (8)
  - ADENOVIRAL HEPATITIS [None]
  - ADENOVIRUS INFECTION [None]
  - GRAFT DYSFUNCTION [None]
  - HEPATIC FAILURE [None]
  - HEPATITIS VIRAL [None]
  - LYMPHOCYTE COUNT DECREASED [None]
  - VIRUS STOOL TEST POSITIVE [None]
  - VIRUS URINE TEST POSITIVE [None]
